FAERS Safety Report 5340079-6 (Version None)
Quarter: 2007Q2

REPORT INFORMATION
  Report Type: 
  Country: None (occurrence: None)
  Receive Date: 20070525
  Receipt Date: 20070525
  Transmission Date: 20071010
  Serious: Yes (Other)
  Sender: FDA-Public Use
  Company Number: None

PATIENT
  Age: 50 Year
  Sex: Female
  Weight: 54.4316 kg

DRUGS (1)
  1. EPINEPHRINE [Suspect]
     Indication: ACCIDENTAL NEEDLE STICK
     Dosage: 0.3MG/0.3ML OTO
     Dates: start: 20061024

REACTIONS (4)
  - ACCIDENTAL EXPOSURE [None]
  - INJECTION SITE COLDNESS [None]
  - INJECTION SITE REACTION [None]
  - VASOCONSTRICTION [None]
